FAERS Safety Report 4507514-4 (Version None)
Quarter: 2004Q4

REPORT INFORMATION
  Report Type: 
  Country: None (occurrence: None)
  Receive Date: 20041118
  Receipt Date: 20041103
  Transmission Date: 20050328
  Serious: Yes (Disabling)
  Sender: FDA-Public Use
  Company Number: 2004238304DE

PATIENT
  Age: 52 Year
  Sex: Female
  Weight: 55 kg

DRUGS (1)
  1. CLINDAMYCIN HYDROCHLORIDE CAPSULE (CLINDAMYCIN HYDROCHLORIDE) [Suspect]
     Indication: TOOTH DISORDER
     Dosage: 1200 MG (300 MG, QID), ORAL
     Route: 048
     Dates: start: 20040524, end: 20040501

REACTIONS (4)
  - DRUG INTOLERANCE [None]
  - POLYARTHRITIS [None]
  - POLYMYALGIA RHEUMATICA [None]
  - WHITE BLOOD CELL COUNT INCREASED [None]
